FAERS Safety Report 8355302-3 (Version None)
Quarter: 2012Q2

REPORT INFORMATION
  Report Type: 
  Country: None (occurrence: None)
  Receive Date: 20120511
  Receipt Date: 20120508
  Transmission Date: 20120825
  Serious: Yes (Other)
  Sender: FDA-Public Use
  Company Number: US-BAYER-2012-045883

PATIENT
  Age: 65 Year
  Sex: Female

DRUGS (2)
  1. NAPROXEN SODIUM [Suspect]
     Dosage: 1 DF, PRN
     Route: 048
     Dates: end: 20120508
  2. THYROID TAB [Concomitant]
     Indication: ARTHRALGIA

REACTIONS (1)
  - GLOMERULAR FILTRATION RATE DECREASED [None]
